FAERS Safety Report 8814523 (Version 1)
Quarter: 2012Q4

REPORT INFORMATION
  Report Type: 
  Country: IE (occurrence: IE)
  Receive Date: 20120928
  Receipt Date: 20120928
  Transmission Date: 20130627
  Serious: Yes (Death, Other)
  Sender: FDA-Public Use
  Company Number: PHHY2012IE083613

PATIENT
  Sex: Male

DRUGS (2)
  1. OCTREOTIDE [Suspect]
     Indication: ACROMEGALY
     Route: 058
  2. OCTREOTIDE [Suspect]
     Dosage: 500 mg, TID
     Route: 058

REACTIONS (2)
  - Death [Fatal]
  - Blood growth hormone increased [Not Recovered/Not Resolved]
